FAERS Safety Report 20835362 (Version 1)
Quarter: 2022Q2

REPORT INFORMATION
  Report Type: Spontaneous
  Country: CO (occurrence: CO)
  Receive Date: 20220516
  Receipt Date: 20220516
  Transmission Date: 20220720
  Serious: Yes (Other)
  Sender: FDA-Public Use
  Company Number: CO-BAYER-2018-204680

PATIENT
  Sex: Female
  Weight: 65.99 kg

DRUGS (1)
  1. LEVONORGESTREL [Suspect]
     Active Substance: LEVONORGESTREL
     Indication: Product used for unknown indication
     Route: 059
     Dates: start: 20170727, end: 20180521

REACTIONS (4)
  - Pregnancy with implant contraceptive [Unknown]
  - Vomiting [Unknown]
  - Drug ineffective [Unknown]
  - Headache [Unknown]
